FAERS Safety Report 11914272 (Version 1)
Quarter: 2016Q1

REPORT INFORMATION
  Report Type: Spontaneous
  Country: PL (occurrence: PL)
  Receive Date: 20160113
  Receipt Date: 20160113
  Transmission Date: 20160526
  Serious: Yes (Hospitalization)
  Sender: FDA-Public Use
  Company Number: PL-SYMPLMED PHARMACEUTICALS-2015SYMPLMED000112

PATIENT

DRUGS (9)
  1. PRESTARIUM [Suspect]
     Active Substance: PERINDOPRIL
     Dosage: 7.5 MG, QD
     Route: 048
     Dates: end: 201406
  2. UNSPECIFIED HERBAL DRUG [Concomitant]
     Indication: SEDATION
     Dosage: UNK
     Dates: start: 2000
  3. PRESTARIUM [Suspect]
     Active Substance: PERINDOPRIL
     Indication: HYPERTENSION
     Dosage: 2.5 MG, QD
     Route: 048
     Dates: start: 2001, end: 2006
  4. PRESTARIUM [Suspect]
     Active Substance: PERINDOPRIL
     Dosage: 5 MG, QD
     Route: 048
     Dates: start: 2006
  5. PRESTARIUM [Suspect]
     Active Substance: PERINDOPRIL
     Dosage: 10 MG, QD
     Route: 048
     Dates: start: 201406
  6. SERMION                            /00396401/ [Concomitant]
     Indication: PRODUCT USED FOR UNKNOWN INDICATION
     Dosage: 20 MG, QD
     Dates: start: 200707
  7. BETALOC [Concomitant]
     Active Substance: METOPROLOL TARTRATE
     Indication: TACHYCARDIA
     Dosage: UNK
  8. ZOCOR [Concomitant]
     Active Substance: SIMVASTATIN
     Dosage: 20 MG, QD
  9. ZOCOR [Concomitant]
     Active Substance: SIMVASTATIN
     Indication: DYSLIPIDAEMIA
     Dosage: 10 MG, QD
     Dates: start: 2006

REACTIONS (8)
  - Blood pressure decreased [Recovered/Resolved]
  - Blood glucose decreased [Recovered/Resolved]
  - Arteriosclerosis [Not Recovered/Not Resolved]
  - Blood potassium decreased [Recovered/Resolved]
  - Paraesthesia oral [Recovered/Resolved]
  - Syncope [Recovered/Resolved]
  - Transient ischaemic attack [Recovered/Resolved]
  - Blood pressure increased [Recovering/Resolving]

NARRATIVE: CASE EVENT DATE: 200707
